FAERS Safety Report 17431448 (Version 2)
Quarter: 2020Q2

REPORT INFORMATION
  Report Type: Spontaneous
  Country: JP (occurrence: JP)
  Receive Date: 20200218
  Receipt Date: 20200625
  Transmission Date: 20200713
  Serious: Yes (Death, Hospitalization, Other)
  Sender: FDA-Public Use
  Company Number: JP-SA-2019SA168332

PATIENT

DRUGS (6)
  1. ELPLAT [Suspect]
     Active Substance: OXALIPLATIN
     Dosage: UNK, Q3W, 1 COURSE
     Route: 041
  2. BEVACIZUMAB. [Concomitant]
     Active Substance: BEVACIZUMAB
     Indication: COLON CANCER
     Dosage: UNK
     Route: 065
  3. GIMERACIL;OTERACIL POTASSIUM;TEGAFUR [Concomitant]
     Active Substance: GIMERACIL\OTERACIL\TEGAFUR
     Indication: COLON CANCER
     Dosage: UNK
     Dates: start: 201806
  4. LEUCOVORIN [FOLINIC ACID] [Concomitant]
     Active Substance: LEUCOVORIN
     Indication: COLON CANCER
     Dosage: UNK UNK, QW
     Route: 041
  5. ELPLAT [Suspect]
     Active Substance: OXALIPLATIN
     Indication: COLON CANCER
     Dosage: 6 COURSE, UNK UNK, QOW
     Route: 041
     Dates: start: 201806
  6. FLUOROURACIL. [Concomitant]
     Active Substance: FLUOROURACIL
     Indication: COLON CANCER
     Dosage: UNK

REACTIONS (14)
  - Hepatic atrophy [Fatal]
  - Anaemia [Fatal]
  - Jaundice [Fatal]
  - Oesophageal varices haemorrhage [Fatal]
  - Thrombosis [Unknown]
  - Blood bilirubin increased [Fatal]
  - Varices oesophageal [Fatal]
  - Condition aggravated [Fatal]
  - Hepatic failure [Fatal]
  - Abdominal distension [Fatal]
  - Ascites [Fatal]
  - Venoocclusive liver disease [Fatal]
  - Disease recurrence [Fatal]
  - Splenomegaly [Fatal]

NARRATIVE: CASE EVENT DATE: 201903
